FAERS Safety Report 25585769 (Version 3)
Quarter: 2025Q3

REPORT INFORMATION
  Report Type: Spontaneous
  Country: US (occurrence: US)
  Receive Date: 20250721
  Receipt Date: 20250804
  Transmission Date: 20251020
  Serious: Yes (Life-Threatening, Hospitalization, Other)
  Sender: NOVARTIS
  Company Number: US-SANDOZ-SDZ2025US050577

PATIENT
  Age: 56 Year
  Sex: Female

DRUGS (5)
  1. CYCLOSPORINE [Suspect]
     Active Substance: CYCLOSPORINE
     Indication: Aplastic anaemia
     Route: 065
  2. VORICONAZOLE [Suspect]
     Active Substance: VORICONAZOLE
     Indication: Antifungal treatment
     Route: 065
  3. VORICONAZOLE [Suspect]
     Active Substance: VORICONAZOLE
     Indication: Sinusitis fungal
  4. LAPINE T-LYMPHOCYTE IMMUNE GLOBULIN [Suspect]
     Active Substance: LAPINE T-LYMPHOCYTE IMMUNE GLOBULIN
     Indication: Aplastic anaemia
     Route: 065
  5. AMPHOTERICIN B [Concomitant]
     Active Substance: AMPHOTERICIN B
     Indication: Bronchopulmonary aspergillosis
     Route: 065

REACTIONS (5)
  - Pulmonary alveolar haemorrhage [Unknown]
  - Bronchopulmonary aspergillosis [Unknown]
  - Drug resistance [Unknown]
  - Sepsis [Unknown]
  - Off label use [Unknown]
